FAERS Safety Report 13405250 (Version 2)
Quarter: 2017Q2

REPORT INFORMATION
  Report Type: Spontaneous
  Country: ES (occurrence: ES)
  Receive Date: 20170405
  Receipt Date: 20170621
  Transmission Date: 20170830
  Serious: Yes (Other)
  Sender: FDA-Public Use
  Company Number: ES-AMGEN-ESPSP2017048907

PATIENT
  Age: 58 Year
  Sex: Female

DRUGS (11)
  1. ESCITALOPRAM [Concomitant]
     Active Substance: ESCITALOPRAM OXALATE
  2. ALDACTONE [Concomitant]
     Active Substance: SPIRONOLACTONE
  3. VARIDASA [Concomitant]
  4. OMEPRAZOL [Concomitant]
     Active Substance: OMEPRAZOLE
  5. POLIBUTIN [Concomitant]
  6. PEITEL [Concomitant]
  7. ANSIUM [Concomitant]
  8. SINTROM [Concomitant]
     Active Substance: ACENOCOUMAROL
     Indication: DEEP VEIN THROMBOSIS
  9. HIDROFEROL [Concomitant]
     Active Substance: CALCIFEDIOL
     Dosage: 1 PHIAL EACH MONTH
  10. VITAMIN D [Concomitant]
     Active Substance: CHOLECALCIFEROL
     Dosage: 1 PHIAL EACH MONTH
  11. PROLIA [Suspect]
     Active Substance: DENOSUMAB
     Indication: OSTEOPOROSIS
     Dosage: UNK
     Route: 065
     Dates: end: 20160331

REACTIONS (2)
  - Thoracic vertebral fracture [Recovering/Resolving]
  - Lumbar vertebral fracture [Recovering/Resolving]
